FAERS Safety Report 9411940 (Version 1)
Quarter: 2013Q3

REPORT INFORMATION
  Report Type: Report from Study
  Country: CA (occurrence: CA)
  Receive Date: 20130722
  Receipt Date: 20130722
  Transmission Date: 20140515
  Serious: Yes (Death, Hospitalization)
  Sender: FDA-Public Use
  Company Number: PHMT2006CA00811

PATIENT
  Sex: Male

DRUGS (1)
  1. CLOZARIL [Suspect]
     Indication: SCHIZOPHRENIA
     Dosage: UNK
     Route: 048
     Dates: start: 20010111, end: 20130610

REACTIONS (4)
  - Death [Fatal]
  - Pneumonia aspiration [Unknown]
  - Pyrexia [Unknown]
  - Pneumonia [Unknown]
